FAERS Safety Report 8015954-4 (Version None)
Quarter: 2011Q4

REPORT INFORMATION
  Report Type: 
  Country: None (occurrence: None)
  Receive Date: 20111228
  Receipt Date: 20111228
  Transmission Date: 20120403
  Serious: No
  Sender: FDA-Public Use
  Company Number: None

PATIENT
  Age: 73 Year
  Sex: Female
  Weight: 50 kg

DRUGS (2)
  1. FULL MEDICATION LIST AS OF 7/8/2011 ATTACHED [Concomitant]
  2. FANAPT [Suspect]
     Indication: SCHIZOAFFECTIVE DISORDER BIPOLAR TYPE
     Dosage: FANAPT 12MG BID PO
     Route: 048
     Dates: start: 20110209, end: 20110727

REACTIONS (7)
  - DIET REFUSAL [None]
  - MASTICATION DISORDER [None]
  - DRUG INEFFECTIVE [None]
  - URINARY TRACT INFECTION [None]
  - LETHARGY [None]
  - MUSCLE RIGIDITY [None]
  - COGNITIVE DISORDER [None]
